FAERS Safety Report 7097808-3 (Version None)
Quarter: 2010Q4

REPORT INFORMATION
  Report Type: 
  Country: None (occurrence: None)
  Receive Date: 20101103
  Receipt Date: 20101021
  Transmission Date: 20110411
  Serious: Yes (Hospitalization, Other)
  Sender: FDA-Public Use
  Company Number: 2010AP002252

PATIENT
  Age: 2 Day

DRUGS (1)
  1. TRAMADOL HYDROCHLORIDE [Suspect]
     Dosage: QD;TRPL
     Route: 064

REACTIONS (6)
  - AGITATION NEONATAL [None]
  - DRUG WITHDRAWAL SYNDROME NEONATAL [None]
  - IRRITABILITY [None]
  - MATERNAL DRUGS AFFECTING FOETUS [None]
  - MYOCLONUS [None]
  - PREMATURE BABY [None]
